FAERS Safety Report 4819550-9 (Version None)
Quarter: 2005Q4

REPORT INFORMATION
  Report Type: 
  Country: None (occurrence: None)
  Receive Date: 20051102
  Receipt Date: 20051020
  Transmission Date: 20060501
  Serious: Yes (Hospitalization)
  Sender: FDA-Public Use
  Company Number: 215844

PATIENT
  Age: 49 Year
  Sex: Female
  Weight: 86 kg

DRUGS (5)
  1. BEVACIZUMAB (BEVACIZUMAB) PWDR + SOLVENT, INFUSION SOLN, 100MG [Suspect]
     Indication: OVARIAN CANCER
     Dosage: 1336 MG, Q3W, INTRAVENOUS
     Route: 042
     Dates: start: 20050420, end: 20050622
  2. ALPRAZOLAM [Concomitant]
  3. LISINOPRIL [Concomitant]
  4. RANITIDINE [Concomitant]
  5. DARVOCET (ACETAMINOPHEN, PROPROXYPHENE NAPSYLATE) [Concomitant]

REACTIONS (7)
  - APPENDICITIS PERFORATED [None]
  - COLON CANCER [None]
  - CULTURE POSITIVE [None]
  - ILEUS PARALYTIC [None]
  - METASTASIS [None]
  - PURULENT DISCHARGE [None]
  - SOFT TISSUE DISORDER [None]
